FAERS Safety Report 7591256-5 (Version None)
Quarter: 2011Q3

REPORT INFORMATION
  Report Type: 
  Country: None (occurrence: None)
  Receive Date: 20110706
  Receipt Date: 20110627
  Transmission Date: 20111222
  Serious: No
  Sender: FDA-Public Use
  Company Number: US-BIOGENIDEC-2011BI014327

PATIENT
  Sex: Female

DRUGS (1)
  1. TYSABRI [Suspect]
     Indication: MULTIPLE SCLEROSIS
     Route: 042
     Dates: start: 20101108, end: 20110331

REACTIONS (8)
  - FATIGUE [None]
  - MUSCULAR WEAKNESS [None]
  - ABDOMINAL PAIN UPPER [None]
  - ARTHRALGIA [None]
  - OROPHARYNGEAL PAIN [None]
  - BLOOD PRESSURE INCREASED [None]
  - LYMPH NODE PAIN [None]
  - LYMPHADENOPATHY [None]
